FAERS Safety Report 23294234 (Version 1)
Quarter: 2023Q4

REPORT INFORMATION
  Report Type: Spontaneous
  Country: US (occurrence: US)
  Receive Date: 20231213
  Receipt Date: 20231213
  Transmission Date: 20240109
  Serious: No
  Sender: FDA-Public Use
  Company Number: US-VIVUS LLC-2022V1000598

PATIENT
  Age: 51 Year
  Sex: Female

DRUGS (1)
  1. PANCREAZE [Suspect]
     Active Substance: PANCRELIPASE AMYLASE\PANCRELIPASE LIPASE\PANCRELIPASE PROTEASE
     Indication: Product used for unknown indication
     Dosage: 37,000/97,300/149,900 USP UNITS
     Route: 048
     Dates: start: 2022

REACTIONS (3)
  - Pruritus [Unknown]
  - Dyspnoea [Unknown]
  - Cough [Unknown]
